FAERS Safety Report 4945852-1 (Version None)
Quarter: 2006Q1

REPORT INFORMATION
  Report Type: 
  Country: None (occurrence: None)
  Receive Date: 20060117
  Receipt Date: 20050812
  Transmission Date: 20060701
  Serious: Yes (Other)
  Sender: FDA-Public Use
  Company Number: A03200502493

PATIENT
  Age: 75 Year
  Sex: Female
  Weight: 62.5964 kg

DRUGS (13)
  1. PLAVIX [Suspect]
     Indication: DRUG USE FOR UNKNOWN INDICATION
     Dosage: UNK ORAL
     Route: 048
  2. ATORVASTATIN - TABLET - UNIT DOSE: UNKNOWN [Suspect]
     Indication: CARDIAC DISORDER
     Dosage: 1 DF QD - ORAL
     Route: 048
     Dates: start: 20041108
  3. STUDY THERAPY ( TORCETRAPIB VS. PLACEBO) -UNKNOWN [Suspect]
     Indication: CARDIAC DISORDER
     Dosage: SEE IMAGE
     Route: 065
     Dates: start: 20041108
  4. ASA - ACETYLSALICLIC ACID - TABLET- [Suspect]
     Dosage: SEE IMAGE
     Route: 048
     Dates: start: 19940101
  5. FOLIC ACID [Concomitant]
  6. UBIDECARENONE [Concomitant]
  7. VITAMIN E [Concomitant]
  8. MULTI-VITAMIN [Concomitant]
  9. ALPRAZOLAM [Concomitant]
  10. ESOMEPRAZOLE [Concomitant]
  11. AMLODIPINE + BENAZEPRIL [Concomitant]
  12. METOPROLOL [Concomitant]
  13. HYDRCHLOROTHIAZIDE [Concomitant]

REACTIONS (1)
  - GASTROINTESTINAL HAEMORRHAGE [None]
